FAERS Safety Report 23690281 (Version 2)
Quarter: 2024Q2

REPORT INFORMATION
  Report Type: Report from Study
  Country: EG (occurrence: EG)
  Receive Date: 20240401
  Receipt Date: 20240403
  Transmission Date: 20240716
  Serious: No
  Sender: FDA-Public Use
  Company Number: EG-SANDOZ-SDZ2024EG033124

PATIENT
  Sex: Female
  Weight: 38 kg

DRUGS (4)
  1. OMNITROPE [Suspect]
     Active Substance: SOMATROPIN
     Indication: Growth hormone deficiency
     Dosage: 0.9 MG, QD
     Route: 058
     Dates: start: 202210
  2. ARGININE [Concomitant]
     Active Substance: ARGININE
     Indication: Nutritional supplementation
     Dosage: ONCE DAILY
     Route: 048
     Dates: start: 202403
  3. CALCIMAT [Concomitant]
     Dosage: ONCE DAILY
     Route: 048
     Dates: start: 202203
  4. OCTOZINC [Concomitant]
     Indication: Nutritional supplementation
     Dosage: ONCE DAILY
     Route: 065
     Dates: start: 202203

REACTIONS (5)
  - Medication error [Not Recovered/Not Resolved]
  - Circumstance or information capable of leading to medication error [Not Recovered/Not Resolved]
  - Wrong technique in product usage process [Recovered/Resolved]
  - Off label use [Not Recovered/Not Resolved]
  - Device issue [Unknown]
